FAERS Safety Report 15187349 (Version 2)
Quarter: 2019Q1

REPORT INFORMATION
  Report Type: Spontaneous
  Country: US (occurrence: US)
  Receive Date: 20180723
  Receipt Date: 20190130
  Transmission Date: 20190417
  Serious: No
  Sender: FDA-Public Use
  Company Number: US-EXELIXIS-CABO-18014001

PATIENT

DRUGS (2)
  1. CABOMETYX [Suspect]
     Active Substance: CABOZANTINIB S-MALATE
     Indication: RENAL CANCER STAGE IV
     Dosage: 40 MG, QD
  2. XGEVA [Concomitant]
     Active Substance: DENOSUMAB
     Dosage: UNK

REACTIONS (6)
  - Depression [Unknown]
  - Pain [Unknown]
  - Flatulence [Unknown]
  - Glossodynia [Unknown]
  - Fatigue [Unknown]
  - Gastric disorder [Recovering/Resolving]
